FAERS Safety Report 14168584 (Version 1)
Quarter: 2017Q4

REPORT INFORMATION
  Report Type: Spontaneous
  Country: AU (occurrence: AU)
  Receive Date: 20171108
  Receipt Date: 20171108
  Transmission Date: 20180321
  Serious: Yes (Other)
  Sender: FDA-Public Use
  Company Number: AU-ALEMBIC PHARMACUETICALS LIMITED-2017SCAL000865

PATIENT

DRUGS (1)
  1. LAMOTRIGINE. [Suspect]
     Active Substance: LAMOTRIGINE
     Indication: PETIT MAL EPILEPSY
     Dosage: UNK

REACTIONS (4)
  - Choroidal effusion [Recovered/Resolved]
  - Acute myopia [Recovered/Resolved]
  - Lymphadenopathy [Recovered/Resolved]
  - Vision blurred [Recovered/Resolved]
